FAERS Safety Report 11223928 (Version 1)
Quarter: 2015Q2

REPORT INFORMATION
  Report Type: Spontaneous
  Country: US (occurrence: US)
  Receive Date: 20150629
  Receipt Date: 20150629
  Transmission Date: 20150821
  Serious: No
  Sender: FDA-Public Use
  Company Number: US-ASTRAZENECA-2015SE60345

PATIENT
  Sex: Male
  Weight: 81.6 kg

DRUGS (3)
  1. METFORMIN [Concomitant]
     Active Substance: METFORMIN HYDROCHLORIDE
     Dosage: 1000 MG
  2. GLIMEPRID [Concomitant]
     Active Substance: GLIMEPIRIDE
     Dosage: 5MG
  3. BYDUREON [Suspect]
     Active Substance: EXENATIDE
     Indication: TYPE 2 DIABETES MELLITUS
     Route: 058
     Dates: start: 201501

REACTIONS (5)
  - Injection site mass [Unknown]
  - Underdose [Unknown]
  - Wrong technique in drug usage process [Unknown]
  - Intentional product misuse [Unknown]
  - Device issue [Unknown]
